FAERS Safety Report 12907502 (Version 1)
Quarter: 2016Q4

REPORT INFORMATION
  Report Type: Spontaneous
  Country: US (occurrence: US)
  Receive Date: 20161103
  Receipt Date: 20161103
  Transmission Date: 20170207
  Serious: Yes (Other)
  Sender: FDA-Public Use
  Company Number: US-PFIZER INC-2016510114

PATIENT
  Sex: Male
  Weight: 122.5 kg

DRUGS (14)
  1. GABAPENTIN. [Suspect]
     Active Substance: GABAPENTIN
     Indication: NEUROPATHY PERIPHERAL
     Dosage: 300 MG, 3X/DAY
     Route: 048
     Dates: start: 201603
  2. AMBIEN CR [Concomitant]
     Active Substance: ZOLPIDEM TARTRATE
     Indication: SLEEP DISORDER
     Dosage: 12.5 MG, 1X/DAY
  3. TACROLIMUS. [Concomitant]
     Active Substance: TACROLIMUS
     Indication: TRANSPLANT REJECTION
     Dosage: 1MG TABLETS THREE
     Route: 048
     Dates: start: 201507
  4. MYCOPHENOLIC ACID. [Concomitant]
     Active Substance: MYCOPHENOLIC ACID
     Indication: TRANSPLANT REJECTION
     Dosage: 720 MG, 2X/DAY, 360MG TABLETS TWO TWICE DAILY
  5. AMBIEN CR [Concomitant]
     Active Substance: ZOLPIDEM TARTRATE
     Dosage: 12.5 MG, 1X/DAY
  6. HYDROXYZINE [Concomitant]
     Active Substance: HYDROXYZINE\HYDROXYZINE HYDROCHLORIDE
     Indication: HYPERSENSITIVITY
     Dosage: 25 MG, 4 TIMES DAILY, AS NEEDED
     Dates: start: 2015
  7. CARVEDILOL. [Concomitant]
     Active Substance: CARVEDILOL
     Indication: BLOOD PRESSURE ABNORMAL
     Dosage: UNK
  8. CARVEDILOL. [Concomitant]
     Active Substance: CARVEDILOL
     Dosage: 25 MG, ONCE DAILY AS NEEDED
  9. AMITRIPTYLINE [Concomitant]
     Active Substance: AMITRIPTYLINE
     Indication: NEUROPATHY PERIPHERAL
  10. ZORTRESS [Concomitant]
     Active Substance: EVEROLIMUS
     Indication: TRANSPLANT REJECTION
     Dosage: 4.5 MG, 2X/DAY
     Route: 048
     Dates: start: 2015
  11. TACROLIMUS. [Concomitant]
     Active Substance: TACROLIMUS
     Dosage: 1MG TABLETS THREE
  12. URSODIOL. [Concomitant]
     Active Substance: URSODIOL
     Indication: LIVER DISORDER
     Dosage: 500MG UP TO TWO TIMES AS NEEDED
  13. AMITRIPTYLINE [Concomitant]
     Active Substance: AMITRIPTYLINE
     Indication: SLEEP DISORDER
     Dosage: 25 MG, ONCE AT NIGHT AS NEEDED
     Dates: start: 201608
  14. ASPIRIN. [Concomitant]
     Active Substance: ASPIRIN
     Dosage: BABY DOSE ONCE DAILY

REACTIONS (5)
  - Increased appetite [Recovering/Resolving]
  - Abasia [Unknown]
  - Impaired work ability [Unknown]
  - Product use issue [Unknown]
  - Pain [Not Recovered/Not Resolved]

NARRATIVE: CASE EVENT DATE: 201603
